FAERS Safety Report 10271416 (Version 1)
Quarter: 2014Q1

REPORT INFORMATION
  Report Type: Spontaneous
  Country: US (occurrence: None)
  Receive Date: 20140306
  Receipt Date: 20140306
  Transmission Date: 20141002
  Serious: Yes (Hospitalization)
  Sender: FDA-Public Use
  Company Number: 163-21880-13083833

PATIENT
  Age: 81 Year
  Sex: Male
  Weight: 91.3 kg

DRUGS (22)
  1. REVLIMID (LENALIDOMIDE) (10 MILLIGRAM, CAPSULES) [Suspect]
     Indication: PLASMA CELL MYELOMA
     Dosage: 10 MG, 21 IN 28 D, PO
     Route: 048
     Dates: start: 20130318
  2. MLN9708/PLACEBO [Suspect]
     Indication: PLASMA CELL MYELOMA
     Dosage: 40 MG , 3 IN 28 D, PO
     Route: 048
     Dates: start: 20130318
  3. DEXAMETHASONE (DEXAMETHASONE) (4 MILLIGRAM, UNKNOWN) [Suspect]
     Indication: PLASMA CELL MYELOMA
     Dosage: 40 MG, 4 IN 28 D
     Route: 048
     Dates: start: 20130318
  4. KLONOPIN [Suspect]
     Indication: PRODUCT USED FOR UNKNOWN INDICATION
  5. ZETIA (EZETIMIBE) [Concomitant]
  6. UROXATRAL (ALFUZOSIN HYDRODROCHLORIDE) [Concomitant]
  7. TRICOR (FENOFIBRATE) [Concomitant]
  8. CRESTOR (ROSUVASTATIN) [Concomitant]
  9. PRILOSEC (OMEPRAZOLE) (ENTERIC-COATED TABLET) [Concomitant]
  10. COUMADIN (WARFARIN SODIUM) [Concomitant]
  11. AMOXICILLIN [Concomitant]
  12. COLACE (DOCUSATE SODIUM) [Concomitant]
  13. LIDOCAINE (LIDOCAINE) [Concomitant]
  14. NIASPAN ER (NICOTINIC ACID) [Concomitant]
  15. SENNA [Concomitant]
  16. OXYCODONE [Concomitant]
  17. PREVIDENT (SODIUM FLUORIDE) [Concomitant]
  18. FENTANYL [Concomitant]
  19. CLONAZEPAM [Concomitant]
  20. PROCHLORPERAZINE [Concomitant]
  21. DURAGESIC (FENTANYL) [Concomitant]
  22. COMPAZINE (PROCHLORPERAZINE EDISYLATE) [Concomitant]

REACTIONS (1)
  - Confusional state [None]
